FAERS Safety Report 6784749-1 (Version None)
Quarter: 2010Q2

REPORT INFORMATION
  Report Type: 
  Country: None (occurrence: None)
  Receive Date: 20100622
  Receipt Date: 20100608
  Transmission Date: 20101027
  Serious: Yes (Other)
  Sender: FDA-Public Use
  Company Number: PHHY2010US26372

PATIENT
  Sex: Female

DRUGS (8)
  1. ZOMETA [Suspect]
     Indication: BREAST CANCER
     Dosage: UNK
     Route: 042
     Dates: start: 20090801, end: 20100201
  2. FOSAMAX [Suspect]
     Indication: OSTEOPENIA
     Route: 048
  3. FEMARA [Concomitant]
     Dosage: UNK
  4. VITAMIN TAB [Concomitant]
  5. CALCIUM CARBONATE [Concomitant]
  6. NAPROXEN [Concomitant]
  7. BLOOD PRESSURE MEDICATIONS [Concomitant]
  8. ARIMIDEX [Concomitant]

REACTIONS (4)
  - BONE LESION [None]
  - DEBRIDEMENT [None]
  - OSTEONECROSIS OF JAW [None]
  - WOUND DEHISCENCE [None]
